FAERS Safety Report 17723113 (Version 1)
Quarter: 2020Q2

REPORT INFORMATION
  Report Type: Report from Study
  Country: US (occurrence: US)
  Receive Date: 20200429
  Receipt Date: 20200429
  Transmission Date: 20200714
  Serious: Yes (Hospitalization)
  Sender: FDA-Public Use
  Company Number: US-MYLANLABS-2020M1042187

PATIENT
  Age: 26 Year
  Sex: Male

DRUGS (2)
  1. CEPHALEXIN                         /00145501/ [Suspect]
     Active Substance: CEPHALEXIN
     Indication: ANTIBIOTIC THERAPY
     Route: 065
  2. SULPHAMETHOXAZOLE/TRIMETHOPRIM [Suspect]
     Active Substance: SULFAMETHOXAZOLE\TRIMETHOPRIM
     Indication: ANTIBIOTIC THERAPY
     Route: 065

REACTIONS (1)
  - Drug reaction with eosinophilia and systemic symptoms [Recovering/Resolving]
